FAERS Safety Report 6565781-X (Version None)
Quarter: 2010Q1

REPORT INFORMATION
  Report Type: 
  Country: None (occurrence: None)
  Receive Date: 20100201
  Receipt Date: 20090923
  Transmission Date: 20100710
  Serious: No
  Sender: FDA-Public Use
  Company Number: US-ABBOTT-09P-163-0599408-00

PATIENT
  Sex: Male
  Weight: 65.83 kg

DRUGS (6)
  1. LUPRON DEPOT [Suspect]
     Indication: HORMONE SUPPRESSION THERAPY
     Route: 050
     Dates: start: 20090821
  2. OMEPRAZOLE [Concomitant]
     Indication: GASTROOESOPHAGEAL REFLUX DISEASE
  3. BUSPIRONE XL [Concomitant]
     Indication: DEPRESSION
  4. RITALIN [Concomitant]
     Indication: DEPRESSION
  5. TERAZOSIN HCL [Concomitant]
     Indication: HYPERTENSION
     Dosage: 5-20 MILLIGRAMS
  6. LISINOPRIL/HYDROCHLOORTHIAZIDE [Concomitant]
     Indication: HYPERTENSION
     Dosage: 10/12.5 MILLIGRAMS

REACTIONS (2)
  - ERECTILE DYSFUNCTION [None]
  - INJECTION SITE PAIN [None]
